FAERS Safety Report 9362507 (Version 1)
Quarter: 2013Q2

REPORT INFORMATION
  Report Type: Spontaneous
  Country: US (occurrence: US)
  Receive Date: 20130622
  Receipt Date: 20130622
  Transmission Date: 20140414
  Serious: No
  Sender: FDA-Public Use
  Company Number: US-US-EMD SERONO, INC.-7166761

PATIENT
  Age: 59 Year
  Sex: Female

DRUGS (2)
  1. REBIF [Suspect]
     Indication: PRODUCT USED FOR UNKNOWN INDICATION
     Route: 058
     Dates: start: 20120814
  2. REBIF [Suspect]
     Route: 058

REACTIONS (7)
  - Flushing [Not Recovered/Not Resolved]
  - Pollakiuria [Not Recovered/Not Resolved]
  - Burning sensation [Unknown]
  - Paraesthesia [Unknown]
  - Headache [Not Recovered/Not Resolved]
  - Fatigue [Not Recovered/Not Resolved]
  - Injection site erythema [Not Recovered/Not Resolved]
